FAERS Safety Report 10453376 (Version 1)
Quarter: 2014Q3

REPORT INFORMATION
  Report Type: Spontaneous
  Country: IT (occurrence: IT)
  Receive Date: 20140915
  Receipt Date: 20140915
  Transmission Date: 20150326
  Serious: Yes (Hospitalization)
  Sender: FDA-Public Use
  Company Number: PHHY2014IT112421

PATIENT
  Age: 80 Year
  Sex: Male

DRUGS (5)
  1. PLAVIX [Suspect]
     Active Substance: CLOPIDOGREL BISULFATE
     Indication: CORONARY REVASCULARISATION
     Dosage: 75 MG, QD
     Route: 048
     Dates: start: 20140703, end: 20140802
  2. ASPIRIN. [Suspect]
     Active Substance: ASPIRIN
     Indication: CORONARY REVASCULARISATION
     Dosage: 100 MG, QD
     Route: 048
     Dates: start: 20140703, end: 20140721
  3. WARFARIN [Suspect]
     Active Substance: WARFARIN
     Indication: CORONARY REVASCULARISATION
     Dosage: 15 MG, QD
     Route: 048
     Dates: start: 20140529, end: 20140721
  4. ATORVASTATIN [Concomitant]
     Active Substance: ATORVASTATIN
     Indication: HYPERCHOLESTEROLAEMIA
     Dosage: 40 MG, UNK
     Route: 048
  5. RAMIPRIL. [Concomitant]
     Active Substance: RAMIPRIL
     Indication: HYPERTENSION
     Dosage: 5 MG, UNK
     Route: 048

REACTIONS (2)
  - Haemorrhagic anaemia [Recovering/Resolving]
  - Melaena [Recovering/Resolving]

NARRATIVE: CASE EVENT DATE: 20140721
